FAERS Safety Report 20816415 (Version 1)
Quarter: 2022Q2

REPORT INFORMATION
  Report Type: Spontaneous
  Country: ES (occurrence: ES)
  Receive Date: 20220512
  Receipt Date: 20220512
  Transmission Date: 20220721
  Serious: Yes (Other)
  Sender: FDA-Public Use
  Company Number: None

PATIENT
  Age: 10 Year
  Sex: Female
  Weight: 30 kg

DRUGS (1)
  1. METHYLPREDNISOLONE SODIUM SUCCINATE [Suspect]
     Active Substance: METHYLPREDNISOLONE SODIUM SUCCINATE
     Indication: Henoch-Schonlein purpura
     Dosage: 60 MG, 1X/DAY (FREQ:24 H;60MG/24H)
     Route: 042
     Dates: start: 20200216, end: 20200218

REACTIONS (1)
  - Hyperamylasaemia [Recovered/Resolved]

NARRATIVE: CASE EVENT DATE: 20200219
